FAERS Safety Report 7909441-9 (Version None)
Quarter: 2011Q4

REPORT INFORMATION
  Report Type: 
  Country: None (occurrence: None)
  Receive Date: 20111111
  Receipt Date: 20111107
  Transmission Date: 20120403
  Serious: Yes (Hospitalization)
  Sender: FDA-Public Use
  Company Number: JP-EISAI INC-E2090-01839-SPO-JP

PATIENT
  Sex: Female

DRUGS (3)
  1. STATIN [Concomitant]
  2. ZONISAMIDE [Suspect]
     Dosage: 100 MG DAILY
     Route: 048
     Dates: start: 20110101, end: 20110101
  3. BETA BLOCKER [Concomitant]

REACTIONS (1)
  - RENAL FAILURE [None]
